FAERS Safety Report 9192984 (Version 1)
Quarter: 2013Q1

REPORT INFORMATION
  Report Type: Spontaneous
  Country: US (occurrence: None)
  Receive Date: 20130314
  Receipt Date: 20130314
  Transmission Date: 20140127
  Serious: Yes (Other)
  Sender: FDA-Public Use
  Company Number: 2013034970

PATIENT
  Sex: Female

DRUGS (3)
  1. HIZENTRA (IMMUNOGLOBULIN HUMAN NORMAL) [Suspect]
     Indication: IMMUNODEFICIENCY COMMON VARIABLE
     Route: 058
     Dates: start: 20130217, end: 20130217
  2. IMITREX (SUMATRIPTAN) [Concomitant]
  3. IBUPROFEN (IBUPROFEN) [Concomitant]

REACTIONS (5)
  - Migraine [None]
  - Headache [None]
  - Meningitis aseptic [None]
  - Nuchal rigidity [None]
  - Photophobia [None]
